FAERS Safety Report 9772007 (Version 1)
Quarter: 2013Q4

REPORT INFORMATION
  Report Type: Spontaneous
  Country: DE (occurrence: DE)
  Receive Date: 20131219
  Receipt Date: 20131219
  Transmission Date: 20140711
  Serious: Yes (Other)
  Sender: FDA-Public Use
  Company Number: DE-VERTEX PHARMACEUTICALS INC-2013-011901

PATIENT
  Sex: 0

DRUGS (13)
  1. INCIVO [Suspect]
     Indication: HEPATITIS C
     Dosage: 750 MG, TID
     Route: 048
  2. INCIVO [Suspect]
     Dosage: 1125 MG, TID
     Route: 048
  3. PEGINTERFERON ALFA 2A [Suspect]
     Indication: HEPATITIS C
     Dosage: 180 ?G, QW
     Route: 058
  4. RIBAVIRIN [Suspect]
     Indication: HEPATITIS C
     Dosage: 800 MG, QD
     Route: 065
  5. RIBAVIRIN [Suspect]
     Dosage: 1000 MG, QD
     Route: 065
  6. RIBAVIRIN [Suspect]
     Dosage: 1200 MG, QD
     Route: 065
  7. EFAVIRENZ [Concomitant]
     Indication: ANTIRETROVIRAL THERAPY
     Dosage: DOSAGE FORM: UNSPECIFIED
     Route: 065
  8. RITONAVIR [Concomitant]
     Indication: ANTIRETROVIRAL THERAPY
     Dosage: DOSAGE FORM: UNSPECIFIED
     Route: 065
  9. ATAZANAVIR [Concomitant]
     Indication: ANTIRETROVIRAL THERAPY
     Dosage: DOSAGE FORM: UNSPECIFIED
     Route: 065
  10. RALTEGRAVIR [Concomitant]
     Indication: HIV INFECTION
     Dosage: DOSAGE FORM: UNSPECIFIED
     Route: 065
  11. TENOFOVIR [Concomitant]
     Indication: HIV INFECTION
     Dosage: DOSAGE FORM: UNSPECIFIED
     Route: 065
  12. EMTRICITABINE [Concomitant]
     Indication: HIV INFECTION
     Dosage: DOSAGE FORM: UNSPECIFIED
     Route: 065
  13. LAMIVUDINE [Concomitant]
     Indication: HIV INFECTION
     Dosage: DOSAGE FORM: UNSPECIFIED
     Route: 065

REACTIONS (11)
  - Mental disorder [Unknown]
  - Adverse event [Unknown]
  - Anaemia [Unknown]
  - Skin reaction [Unknown]
  - Dizziness [Unknown]
  - Headache [Unknown]
  - Off label use [Unknown]
  - Viral load increased [Unknown]
  - Pruritus [Unknown]
  - Nausea [Unknown]
  - Rash [Unknown]
